FAERS Safety Report 24359925 (Version 2)
Quarter: 2024Q4

REPORT INFORMATION
  Report Type: Report from Study
  Country: US (occurrence: US)
  Receive Date: 20240925
  Receipt Date: 20241022
  Transmission Date: 20250115
  Serious: Yes (Other)
  Sender: TAKEDA
  Company Number: US-TAKEDA-2024TUS093288

PATIENT
  Sex: Female
  Weight: 69.66 kg

DRUGS (1)
  1. FRUQUINTINIB [Suspect]
     Active Substance: FRUQUINTINIB
     Indication: Colon cancer
     Dosage: 5 MILLIGRAM
     Route: 048
     Dates: start: 20240804

REACTIONS (4)
  - Neuropathy peripheral [Unknown]
  - Hepatic neoplasm [Unknown]
  - Dyspnoea [Unknown]
  - Fatigue [Unknown]
